FAERS Safety Report 18796901 (Version 8)
Quarter: 2021Q2

REPORT INFORMATION
  Report Type: Spontaneous
  Country: US (occurrence: US)
  Receive Date: 20210128
  Receipt Date: 20210520
  Transmission Date: 20210717
  Serious: Yes (Other)
  Sender: FDA-Public Use
  Company Number: US-CELGENEUS-USA-20200902666

PATIENT
  Sex: Male
  Weight: 86.71 kg

DRUGS (2)
  1. REVLIMID [Suspect]
     Active Substance: LENALIDOMIDE
     Indication: PLASMA CELL MYELOMA
     Dosage: 25 MILLIGRAM
     Route: 048
     Dates: start: 20180424
  2. REVLIMID [Suspect]
     Active Substance: LENALIDOMIDE
     Dosage: 10 MILLIGRAM
     Route: 048
     Dates: start: 201809

REACTIONS (9)
  - Pain [Unknown]
  - Fatigue [Unknown]
  - Nausea [Unknown]
  - Disorientation [Not Recovered/Not Resolved]
  - Headache [Unknown]
  - Hallucination [Not Recovered/Not Resolved]
  - Mitral valve incompetence [Not Recovered/Not Resolved]
  - Confusional state [Not Recovered/Not Resolved]
  - Vomiting [Unknown]
